FAERS Safety Report 19582383 (Version 2)
Quarter: 2024Q1

REPORT INFORMATION
  Report Type: Spontaneous
  Country: FR (occurrence: None)
  Receive Date: 20210720
  Receipt Date: 20240202
  Transmission Date: 20240410
  Serious: Yes (Other)
  Sender: FDA-Public Use
  Company Number: 2021A606275

PATIENT
  Age: 79 Year
  Sex: Female

DRUGS (3)
  1. ESOMEPRAZOLE [Interacting]
     Active Substance: ESOMEPRAZOLE
     Indication: Product used for unknown indication
     Route: 048
  2. LEVOTHYROXINE [Interacting]
     Active Substance: LEVOTHYROXINE\LEVOTHYROXINE SODIUM
     Indication: Thyroid neoplasm
     Dosage: 137.0UG/INHAL UNKNOWN
     Route: 048
  3. IMBRUVICA [Interacting]
     Active Substance: IBRUTINIB
     Indication: Cold type haemolytic anaemia
     Dosage: 420.0MG UNKNOWN
     Route: 048

REACTIONS (2)
  - Drug interaction [Unknown]
  - Blood thyroid stimulating hormone increased [Not Recovered/Not Resolved]
